FAERS Safety Report 11867414 (Version 1)
Quarter: 2015Q4

REPORT INFORMATION
  Report Type: Spontaneous
  Country: IN (occurrence: IN)
  Receive Date: 20151224
  Receipt Date: 20151224
  Transmission Date: 20160305
  Serious: Yes (Death, Hospitalization)
  Sender: FDA-Public Use
  Company Number: IN-PFIZER INC-2015375443

PATIENT
  Age: 78 Year
  Sex: Female

DRUGS (2)
  1. SUTENT [Suspect]
     Active Substance: SUNITINIB MALATE
     Dosage: UNK
     Dates: start: 2015
  2. SUTENT [Suspect]
     Active Substance: SUNITINIB MALATE
     Indication: METASTATIC RENAL CELL CARCINOMA
     Dosage: 50 MG, 1X/DAY
     Route: 048
     Dates: start: 20151031, end: 20151101

REACTIONS (9)
  - Thrombosis [Fatal]
  - Blood pressure increased [Unknown]
  - Mouth ulceration [Not Recovered/Not Resolved]
  - Blood pressure decreased [Unknown]
  - Sepsis [Fatal]
  - Dizziness [Not Recovered/Not Resolved]
  - Pruritus generalised [Recovering/Resolving]
  - Asthenia [Unknown]
  - Dyspnoea [Unknown]

NARRATIVE: CASE EVENT DATE: 2015
